FAERS Safety Report 9842631 (Version 2)
Quarter: 2014Q1

REPORT INFORMATION
  Report Type: Spontaneous
  Country: US (occurrence: US)
  Receive Date: 20140124
  Receipt Date: 20140124
  Transmission Date: 20141002
  Serious: Yes (Disabling)
  Sender: FDA-Public Use
  Company Number: CHPA2013US015129

PATIENT
  Age: 86 Year
  Sex: Female

DRUGS (4)
  1. BENEFIBER W/ WHEAT DEXTRIN [Suspect]
     Indication: NUTRITIONAL SUPPLEMENTATION
     Dosage: 2 TO 4 TABLESPOONS A DAY
     Route: 048
     Dates: start: 2013
  2. LAMISIL [Suspect]
     Dosage: UNK, UNK
     Dates: start: 2013
  3. VITAMIN D [Concomitant]
  4. MINERALS NOS [Concomitant]

REACTIONS (3)
  - Vision blurred [Not Recovered/Not Resolved]
  - Condition aggravated [Not Recovered/Not Resolved]
  - Incorrect dose administered [Unknown]
